FAERS Safety Report 8292573-6 (Version None)
Quarter: 2012Q2

REPORT INFORMATION
  Report Type: 
  Country: None (occurrence: None)
  Receive Date: 20120417
  Receipt Date: 20120302
  Transmission Date: 20120825
  Serious: Yes (Other)
  Sender: FDA-Public Use
  Company Number: US-ASTRAZENECA-2012SE15262

PATIENT
  Sex: Female

DRUGS (2)
  1. NEXIUM [Suspect]
     Route: 048
  2. AMBIEN [Concomitant]

REACTIONS (2)
  - INSOMNIA [None]
  - ANKLE FRACTURE [None]
